FAERS Safety Report 16277335 (Version 3)
Quarter: 2019Q2

REPORT INFORMATION
  Report Type: Spontaneous
  Country: US (occurrence: US)
  Receive Date: 20190506
  Receipt Date: 20190515
  Transmission Date: 20190711
  Serious: Yes (Death, Other)
  Sender: FDA-Public Use
  Company Number: US-JNJFOC-20190504206

PATIENT
  Age: 88 Year
  Sex: Male

DRUGS (2)
  1. PROCARBAZINE [Concomitant]
     Active Substance: PROCARBAZINE
     Indication: LYMPHOMA
     Dosage: ON DAYS 2 AND 8
  2. IMBRUVICA [Suspect]
     Active Substance: IBRUTINIB
     Indication: CENTRAL NERVOUS SYSTEM LYMPHOMA
     Route: 048
     Dates: start: 20190221

REACTIONS (6)
  - Hypophagia [Unknown]
  - General physical health deterioration [Unknown]
  - Off label use [Unknown]
  - Death [Fatal]
  - Cognitive disorder [Unknown]
  - Product use in unapproved indication [Unknown]

NARRATIVE: CASE EVENT DATE: 20190221
